FAERS Safety Report 12240403 (Version 1)
Quarter: 2016Q2

REPORT INFORMATION
  Report Type: Report from Study
  Country: US (occurrence: US)
  Receive Date: 20160405
  Receipt Date: 20160405
  Transmission Date: 20160815
  Serious: Yes (Hospitalization, Other)
  Sender: FDA-Public Use
  Company Number: US-BIOGEN-2016BI00213497

PATIENT
  Age: 53 Year
  Sex: Male

DRUGS (10)
  1. INSULIN [Concomitant]
     Active Substance: INSULIN NOS
     Indication: DIABETES MELLITUS
     Dosage: MAINTENANCE DOSE
     Route: 030
     Dates: start: 200805
  2. NOVOLOG [Concomitant]
     Active Substance: INSULIN ASPART
     Indication: DIABETES MELLITUS
     Dosage: MAINTENANCE
     Route: 030
     Dates: start: 200805
  3. PREDNISONE. [Concomitant]
     Active Substance: PREDNISONE
     Indication: MULTIPLE SCLEROSIS
     Dosage: MAINTENANCE  DOSE
     Route: 048
     Dates: start: 20110313
  4. TECFIDERA [Suspect]
     Active Substance: DIMETHYL FUMARATE
     Indication: MULTIPLE SCLEROSIS
     Dosage: STARTING DOSE
     Route: 048
     Dates: start: 20130320, end: 20130327
  5. METFORMIN [Concomitant]
     Active Substance: METFORMIN HYDROCHLORIDE
     Indication: DIABETES MELLITUS
     Dosage: MAINTENANCE DOSE
     Route: 046
     Dates: start: 200805
  6. INSULIN [Concomitant]
     Active Substance: INSULIN NOS
     Dosage: MAINTENANCE DOSE
     Route: 030
     Dates: start: 200805
  7. LORAZEPAM. [Concomitant]
     Active Substance: LORAZEPAM
     Indication: ANXIETY
     Dosage: MAINTENANCE DOSE
     Route: 048
     Dates: start: 2011
  8. TECFIDERA [Suspect]
     Active Substance: DIMETHYL FUMARATE
     Dosage: MAINTENANCE DOSE
     Route: 048
     Dates: start: 20130328
  9. ZOLOFT [Concomitant]
     Active Substance: SERTRALINE HYDROCHLORIDE
     Indication: MAJOR DEPRESSION
     Dosage: MAINTENANCE DOSE
     Route: 048
     Dates: start: 2011
  10. SEROQUEL [Concomitant]
     Active Substance: QUETIAPINE FUMARATE
     Indication: SCHIZOPHRENIA
     Dosage: MAINTENANCE DOSE
     Route: 048

REACTIONS (6)
  - Multiple sclerosis relapse [Recovered/Resolved with Sequelae]
  - Hallucination, visual [Not Recovered/Not Resolved]
  - Pain [Not Recovered/Not Resolved]
  - Seizure [Not Recovered/Not Resolved]
  - Neuropathy peripheral [Not Recovered/Not Resolved]
  - Hypertension [Not Recovered/Not Resolved]

NARRATIVE: CASE EVENT DATE: 20130815
